FAERS Safety Report 11054959 (Version 1)
Quarter: 2015Q2

REPORT INFORMATION
  Report Type: Spontaneous
  Country: US (occurrence: None)
  Receive Date: 20150421
  Receipt Date: 20150421
  Transmission Date: 20150821
  Serious: No
  Sender: FDA-Public Use
  Company Number: None

PATIENT
  Age: 92 Year
  Sex: Female

DRUGS (5)
  1. HYDROCODONE-APAP [Suspect]
     Active Substance: ACETAMINOPHEN\HYDROCODONE
     Indication: PAIN
     Dosage: 1 4 / DAY MOUTH
     Route: 048
     Dates: start: 20150219, end: 20150220
  2. HYDROCODONE-APAP [Suspect]
     Active Substance: ACETAMINOPHEN\HYDROCODONE
     Indication: PERIODONTAL DISEASE
     Dosage: 1 4 / DAY MOUTH
     Route: 048
     Dates: start: 20150219, end: 20150220
  3. POTASSIUM SUPPLEMENTS [Concomitant]
  4. HYDROCODONE-APAP [Suspect]
     Active Substance: ACETAMINOPHEN\HYDROCODONE
     Indication: SCIATICA
     Dosage: 1 4 / DAY MOUTH
     Route: 048
     Dates: start: 20150219, end: 20150220
  5. HYDROCODONE-APAP [Suspect]
     Active Substance: ACETAMINOPHEN\HYDROCODONE
     Indication: GROIN PAIN
     Dosage: 1 4 / DAY MOUTH
     Route: 048
     Dates: start: 20150219, end: 20150220

REACTIONS (9)
  - Nervousness [None]
  - Headache [None]
  - Product quality issue [None]
  - Feeling jittery [None]
  - Accidental exposure to product [None]
  - Self-medication [None]
  - Insomnia [None]
  - Product substitution issue [None]
  - Drug ineffective [None]

NARRATIVE: CASE EVENT DATE: 20150226
